FAERS Safety Report 9436016 (Version 3)
Quarter: 2013Q4

REPORT INFORMATION
  Report Type: Spontaneous
  Country: AU (occurrence: AU)
  Receive Date: 20130801
  Receipt Date: 20131118
  Transmission Date: 20140711
  Serious: Yes (Hospitalization, Other)
  Sender: FDA-Public Use
  Company Number: AU-MERCK-1307AUS015781

PATIENT
  Age: 45 Year
  Sex: Male

DRUGS (1)
  1. SAPHRIS [Suspect]
     Dosage: 10 MG, QD
     Route: 060

REACTIONS (3)
  - Pulmonary embolism [Unknown]
  - Deep vein thrombosis [Unknown]
  - Off label use [Unknown]
